FAERS Safety Report 8543887-3 (Version None)
Quarter: 2012Q3

REPORT INFORMATION
  Report Type: 
  Country: None (occurrence: None)
  Receive Date: 20120727
  Receipt Date: 20120719
  Transmission Date: 20120928
  Serious: Yes (Hospitalization, Other)
  Sender: FDA-Public Use
  Company Number: MX-ROXANE LABORATORIES, INC.-2012-RO-01576RO

PATIENT
  Age: 26 Year
  Sex: Female

DRUGS (6)
  1. LORAZEPAM [Suspect]
     Indication: CATATONIA
     Dosage: 12 MG
     Route: 048
  2. RISPERIDONE [Suspect]
     Indication: CATATONIA
     Dosage: 2 MG
  3. ZUCLOPENTHIXOL DEPOT [Suspect]
     Indication: AGGRESSION
  4. CLOZAPINE [Suspect]
     Indication: CATATONIA
     Dosage: 100 MG
  5. OLANZAPINE [Suspect]
     Indication: PSYCHOMOTOR HYPERACTIVITY
     Dosage: 20 MG
  6. AMANTADINE HCL [Suspect]
     Indication: CATATONIA
     Dosage: 300 MG

REACTIONS (2)
  - CATATONIA [None]
  - NEUTROPENIA [None]
